FAERS Safety Report 10979332 (Version 3)
Quarter: 2015Q3

REPORT INFORMATION
  Report Type: Spontaneous
  Country: DE (occurrence: DE)
  Receive Date: 20150402
  Receipt Date: 20150716
  Transmission Date: 20151125
  Serious: Yes (Disabling, Other)
  Sender: FDA-Public Use
  Company Number: DE-PFIZER INC-2015112110

PATIENT
  Sex: Female

DRUGS (12)
  1. PHENYTOIN. [Suspect]
     Active Substance: PHENYTOIN
     Indication: EPILEPSY
     Dosage: 300 MG, DAILY
  2. ETHOSUXIMIDE. [Concomitant]
     Active Substance: ETHOSUXIMIDE
     Indication: EPILEPSY
     Dosage: UNK
  3. PHENOBARBITAL. [Suspect]
     Active Substance: PHENOBARBITAL
     Indication: GENERALISED TONIC-CLONIC SEIZURE
  4. PRIMIDONE. [Concomitant]
     Active Substance: PRIMIDONE
     Indication: PETIT MAL EPILEPSY
  5. PRIMIDONE. [Concomitant]
     Active Substance: PRIMIDONE
     Indication: GENERALISED TONIC-CLONIC SEIZURE
  6. PRIMIDONE. [Concomitant]
     Active Substance: PRIMIDONE
     Indication: EPILEPSY
     Dosage: UNK
  7. PHENYTOIN. [Suspect]
     Active Substance: PHENYTOIN
     Indication: PETIT MAL EPILEPSY
     Dosage: 200 MG, DAILY
  8. PHENOBARBITAL. [Suspect]
     Active Substance: PHENOBARBITAL
     Indication: PETIT MAL EPILEPSY
  9. ETHOSUXIMIDE. [Concomitant]
     Active Substance: ETHOSUXIMIDE
     Indication: GENERALISED TONIC-CLONIC SEIZURE
  10. PHENYTOIN. [Suspect]
     Active Substance: PHENYTOIN
     Indication: GENERALISED TONIC-CLONIC SEIZURE
     Dosage: 150-400 MG/DAY
  11. PHENOBARBITAL. [Suspect]
     Active Substance: PHENOBARBITAL
     Indication: EPILEPSY
     Dosage: UNK
  12. ETHOSUXIMIDE. [Concomitant]
     Active Substance: ETHOSUXIMIDE
     Indication: PETIT MAL EPILEPSY

REACTIONS (12)
  - Diplopia [Unknown]
  - Areflexia [Unknown]
  - Ataxia [Unknown]
  - Hypotonia [Unknown]
  - Cerebellar atrophy [Unknown]
  - Vomiting [Unknown]
  - Nystagmus [Unknown]
  - Drug ineffective [Unknown]
  - Toxicity to various agents [Recovering/Resolving]
  - Dysarthria [Unknown]
  - Motor dysfunction [Unknown]
  - Abasia [Unknown]

NARRATIVE: CASE EVENT DATE: 1960
